FAERS Safety Report 21087940 (Version 1)
Quarter: 2022Q3

REPORT INFORMATION
  Report Type: Spontaneous
  Country: CZ (occurrence: CZ)
  Receive Date: 20220715
  Receipt Date: 20220715
  Transmission Date: 20221027
  Serious: Yes (Hospitalization)
  Sender: FDA-Public Use
  Company Number: CZ-002147023-NVSC2022CZ151845

PATIENT
  Age: 68 Year
  Sex: Male

DRUGS (5)
  1. RISPERIDONE [Interacting]
     Active Substance: RISPERIDONE
     Indication: Depression
     Dosage: 2 MILLIGRAM, QD (1 MG, BID)
     Route: 065
  2. PAROXETINE [Interacting]
     Active Substance: PAROXETINE
     Indication: Depression
     Dosage: 40 MILLIGRAM, QD (20 MG, BID)
     Route: 065
  3. ASPIRIN [Concomitant]
     Active Substance: ASPIRIN
     Indication: Depression
     Dosage: 100 MILLIGRAM, QD (100 MG, QD)
     Route: 065
  4. PREGABALIN [Concomitant]
     Active Substance: PREGABALIN
     Indication: Depression
     Dosage: 450 MILLIGRAM, QD (150 MG, TID)
     Route: 065
  5. PERINDOPRIL [Concomitant]
     Active Substance: PERINDOPRIL
     Indication: Depression
     Dosage: 8 MILLIGRAM, QD (4 MG, BID)
     Route: 065

REACTIONS (7)
  - Constipation [Recovered/Resolved]
  - Tremor [Not Recovered/Not Resolved]
  - Potentiating drug interaction [Unknown]
  - Extrapyramidal disorder [Recovering/Resolving]
  - Drug level increased [Unknown]
  - Dysarthria [Recovered/Resolved]
  - Incorrect dose administered [Unknown]
